FAERS Safety Report 20367176 (Version 2)
Quarter: 2022Q1

REPORT INFORMATION
  Report Type: Spontaneous
  Country: US (occurrence: None)
  Receive Date: 20220123
  Receipt Date: 20220217
  Transmission Date: 20220423
  Serious: No
  Sender: FDA-Public Use
  Company Number: 2021A908295

PATIENT
  Age: 21025 Day
  Sex: Female
  Weight: 140.6 kg

DRUGS (2)
  1. BYDUREON BCISE [Suspect]
     Active Substance: EXENATIDE
     Indication: Type 2 diabetes mellitus
     Route: 058
  2. BYDUREON [Suspect]
     Active Substance: EXENATIDE
     Indication: Diabetes mellitus
     Route: 058

REACTIONS (17)
  - Glycosylated haemoglobin decreased [Unknown]
  - Blood glucose fluctuation [Unknown]
  - Weight control [Unknown]
  - Weight increased [Unknown]
  - Feeling abnormal [Unknown]
  - Blood glucose abnormal [Unknown]
  - Fatigue [Unknown]
  - Malaise [Unknown]
  - Appetite disorder [Unknown]
  - Somnolence [Unknown]
  - Pain in extremity [Not Recovered/Not Resolved]
  - Injection site haemorrhage [Unknown]
  - Injection site pain [Unknown]
  - Injection site injury [Unknown]
  - Product dose omission issue [Unknown]
  - Device leakage [Unknown]
  - Needle issue [Unknown]

NARRATIVE: CASE EVENT DATE: 20211228
